FAERS Safety Report 4828368-2 (Version None)
Quarter: 2005Q4

REPORT INFORMATION
  Report Type: 
  Country: None (occurrence: None)
  Receive Date: 20051115
  Receipt Date: 20051004
  Transmission Date: 20060501
  Serious: Yes (Other)
  Sender: FDA-Public Use
  Company Number: US-MERCK-0510USA02204

PATIENT
  Age: 67 Year
  Sex: Male
  Weight: 91 kg

DRUGS (6)
  1. VIOXX [Suspect]
     Indication: ARTHRITIS
     Route: 048
     Dates: end: 20040901
  2. VIOXX [Suspect]
     Route: 065
  3. AVALIDE [Concomitant]
     Route: 065
  4. CARDIZEM [Concomitant]
     Route: 065
  5. ASPIRIN [Concomitant]
     Route: 065
  6. TOPROL-XL [Concomitant]
     Route: 065

REACTIONS (1)
  - MYOCARDIAL INFARCTION [None]
